FAERS Safety Report 6879854-5 (Version None)
Quarter: 2010Q3

REPORT INFORMATION
  Report Type: 
  Country: None (occurrence: None)
  Receive Date: 20100728
  Receipt Date: 20100722
  Transmission Date: 20110219
  Serious: Yes (Death)
  Sender: FDA-Public Use
  Company Number: GB-SANOFI-AVENTIS-2010SA043296

PATIENT
  Age: 80 Year
  Sex: Male

DRUGS (1)
  1. TAXOTERE [Suspect]

REACTIONS (1)
  - PULMONARY FIBROSIS [None]
